FAERS Safety Report 5817236-5 (Version None)
Quarter: 2008Q3

REPORT INFORMATION
  Report Type: 
  Country: None (occurrence: None)
  Receive Date: 20080722
  Receipt Date: 20080717
  Transmission Date: 20090109
  Serious: Yes (Hospitalization)
  Sender: FDA-Public Use
  Company Number: IT-BRISTOL-MYERS SQUIBB COMPANY-14195689

PATIENT
  Age: 46 Year
  Sex: Female
  Weight: 70 kg

DRUGS (2)
  1. SPRYCEL [Suspect]
     Indication: ACUTE LYMPHOCYTIC LEUKAEMIA
     Dosage: CUMULATIVE DOSE - 5880 MG.
     Dates: start: 20080221, end: 20080504
  2. PREDNISONE TAB [Concomitant]
     Dosage: CUMULATIVE DOSE-2400MG.REDUCED 18MAR08;16FEB08-04MAY08;STARTED 14MAY08(60MG/D)RED.50MG/D ON 09JUN08
     Dates: start: 20080216, end: 20080328

REACTIONS (1)
  - PROTEINURIA [None]
